FAERS Safety Report 8571752-4 (Version None)
Quarter: 2012Q3

REPORT INFORMATION
  Report Type: 
  Country: None (occurrence: None)
  Receive Date: 20120806
  Receipt Date: 20120803
  Transmission Date: 20120928
  Serious: Yes (Other)
  Sender: FDA-Public Use
  Company Number: PHHY2012NL067095

PATIENT
  Sex: Male

DRUGS (3)
  1. ZOMETA [Suspect]
     Dosage: 4 MG,/ 100ML ONCE IN 28 DAYS
     Route: 042
     Dates: start: 20120628
  2. ZOMETA [Suspect]
     Dosage: 4 MG,/ 100ML ONCE IN 28 DAYS
     Route: 042
     Dates: start: 20110908
  3. ZOMETA [Suspect]
     Indication: PROSTATE CANCER METASTATIC
     Dosage: 4 MG,/ 100ML ONCE IN 28 DAYS
     Route: 042

REACTIONS (2)
  - TERMINAL STATE [None]
  - GENERAL PHYSICAL HEALTH DETERIORATION [None]
